FAERS Safety Report 7356358-7 (Version None)
Quarter: 2011Q1

REPORT INFORMATION
  Report Type: 
  Country: None (occurrence: None)
  Receive Date: 20110316
  Receipt Date: 20110311
  Transmission Date: 20110831
  Serious: Yes (Other)
  Sender: FDA-Public Use
  Company Number: US-PFIZER INC-2011054120

PATIENT
  Sex: Female

DRUGS (3)
  1. XANAX [Suspect]
     Dosage: HALF TABLET
     Dates: start: 20110302
  2. DRONEDARONE HCL [Suspect]
     Indication: ATRIAL FIBRILLATION
     Dosage: 400 MG, 2X/DAY
     Route: 048
     Dates: start: 20110301
  3. CELEBREX [Suspect]
     Dosage: UNK

REACTIONS (4)
  - HEART RATE IRREGULAR [None]
  - ATRIAL FIBRILLATION [None]
  - DIZZINESS [None]
  - HEART RATE INCREASED [None]
